FAERS Safety Report 16930715 (Version 1)
Quarter: 2019Q4

REPORT INFORMATION
  Report Type: Spontaneous
  Country: US (occurrence: US)
  Receive Date: 20191017
  Receipt Date: 20191017
  Transmission Date: 20200122
  Serious: Yes (Hospitalization)
  Sender: FDA-Public Use
  Company Number: None

PATIENT
  Age: 59 Year
  Sex: Female
  Weight: 67.5 kg

DRUGS (2)
  1. CHLORTHALIDONE. [Concomitant]
     Active Substance: CHLORTHALIDONE
     Dates: start: 20190314
  2. CHLORTHALIDONE. [Suspect]
     Active Substance: CHLORTHALIDONE
     Dates: start: 20190314

REACTIONS (4)
  - Product substitution issue [None]
  - Fluid retention [None]
  - Drug ineffective [None]
  - Dyspnoea [None]

NARRATIVE: CASE EVENT DATE: 20190418
